FAERS Safety Report 8291051-8 (Version None)
Quarter: 2012Q2

REPORT INFORMATION
  Report Type: 
  Country: None (occurrence: None)
  Receive Date: 20120417
  Receipt Date: 20111223
  Transmission Date: 20120825
  Serious: No
  Sender: FDA-Public Use
  Company Number: US-ASTRAZENECA-2011SE37413

PATIENT
  Age: 63 Year
  Sex: Female

DRUGS (1)
  1. NEXIUM [Suspect]
     Indication: GASTROOESOPHAGEAL REFLUX DISEASE
     Route: 048

REACTIONS (7)
  - DIZZINESS [None]
  - NERVE INJURY [None]
  - MALAISE [None]
  - ABDOMINAL DISCOMFORT [None]
  - GASTROINTESTINAL MOTILITY DISORDER [None]
  - WEIGHT INCREASED [None]
  - NAUSEA [None]
